FAERS Safety Report 15213584 (Version 3)
Quarter: 2018Q3

REPORT INFORMATION
  Report Type: Spontaneous
  Country: PT (occurrence: PT)
  Receive Date: 20180730
  Receipt Date: 20180918
  Transmission Date: 20181010
  Serious: Yes (Hospitalization, Other)
  Sender: FDA-Public Use
  Company Number: PT-AUROBINDO-AUR-APL-2018-038582

PATIENT
  Age: 27 Year
  Sex: Female

DRUGS (4)
  1. OLANZAPINE. [Suspect]
     Active Substance: OLANZAPINE
     Indication: PRODUCT USED FOR UNKNOWN INDICATION
     Dosage: 10 MILLIGRAM, DAILY
     Route: 065
  2. BUDESONIDE. [Concomitant]
     Active Substance: BUDESONIDE
     Indication: COUGH
     Dosage: 1 MILLIGRAM
     Route: 055
  3. FLUTICASONE PROPIONATE W/SALMETEROL XINAFOATE [Suspect]
     Active Substance: FLUTICASONE PROPIONATE\SALMETEROL XINAFOATE
     Indication: INFLUENZA LIKE ILLNESS
     Dosage: 1 DOSAGE FORM= (50 MCG SALMETEROL+250 MCG FLUTICASONE PROPIONATE)
     Route: 055
  4. ACETAMINOPHEN. [Concomitant]
     Active Substance: ACETAMINOPHEN
     Indication: PRODUCT USED FOR UNKNOWN INDICATION
     Dosage: 1 GRAM
     Route: 042

REACTIONS (11)
  - Somnolence [Unknown]
  - Delirium [Recovered/Resolved]
  - Aggression [Unknown]
  - Abnormal behaviour [Unknown]
  - Weight decreased [Recovered/Resolved]
  - Altered state of consciousness [Unknown]
  - Intentional product misuse [Unknown]
  - Overdose [Unknown]
  - Weight increased [Unknown]
  - Restlessness [Unknown]
  - Hallucinations, mixed [Unknown]
